FAERS Safety Report 9663955 (Version 4)
Quarter: 2014Q1

REPORT INFORMATION
  Report Type: Spontaneous
  Country: FR (occurrence: FR)
  Receive Date: 20131101
  Receipt Date: 20140117
  Transmission Date: 20141002
  Serious: Yes (Hospitalization)
  Sender: FDA-Public Use
  Company Number: FR-PFIZER INC-2013311308

PATIENT
  Age: 81 Year
  Sex: Female

DRUGS (17)
  1. NEURONTIN [Suspect]
     Dosage: 100 MG, 2X/DAY
     Route: 048
     Dates: start: 2013
  2. TAHOR [Suspect]
     Dosage: 40 UNK, 1X/DAY IN THE EVENING
     Dates: end: 20131003
  3. PLAVIX [Suspect]
     Dosage: 75 MG, 1X/DAY IN THE MORNING
     Dates: end: 20131003
  4. COVERSYL [Concomitant]
     Dosage: 2.5 MG, 1X/DAY IN THE MORNING
  5. BISOPROLOL [Concomitant]
     Dosage: 2.5 MG, 1X/DAY IN THE MORNING
  6. KARDEGIC [Concomitant]
     Dosage: 75 MG, 1X/DAY IN THE MORNING
  7. CALCIPARIN [Concomitant]
     Dosage: 0.2 ML, 2X/DAY
     Route: 058
  8. NOVORAPID [Concomitant]
     Dosage: 10 IU IN THE MORNING AND AT NOON, 12 IU IN THE EVENING
  9. LEVEMIR [Concomitant]
     Dosage: 14 IU, 1X/DAY IN THE EVENING
  10. LASILIX [Concomitant]
     Dosage: 20 MG, 1X/DAY
     Dates: end: 20130926
  11. DOLIPRANE [Concomitant]
     Dosage: 1 G, 4X/DAY
  12. CONTRAMAL [Concomitant]
     Dosage: 50 MG, 4X/DAY AS NEEDED
  13. LAROSCORBINE [Concomitant]
     Dosage: 1 G, 1X/DAY IN THE MORNING
  14. FORLAX [Concomitant]
     Dosage: 2 DF, DAILY IN THE MORNING
  15. XANAX [Concomitant]
     Dosage: 0.25 MG, 3X/DAY + 0.5 DF IN THE EVENING AS NEEDED
  16. INEXIUM [Concomitant]
     Dosage: 40 MG, IN THE EVENING
  17. VERSATIS [Concomitant]
     Dosage: IN THE MORNING

REACTIONS (2)
  - Vascular purpura [Recovered/Resolved]
  - Petechiae [Recovered/Resolved]
